FAERS Safety Report 22309306 (Version 2)
Quarter: 2023Q2

REPORT INFORMATION
  Report Type: Report from Study
  Country: CA (occurrence: CA)
  Receive Date: 20230511
  Receipt Date: 20230523
  Transmission Date: 20230721
  Serious: Yes (Other)
  Sender: FDA-Public Use
  Company Number: CA-BAYER-2023A064369

PATIENT
  Age: 37 Year
  Sex: Female

DRUGS (1)
  1. MIRENA [Suspect]
     Active Substance: LEVONORGESTREL
     Indication: Product used for unknown indication
     Dosage: 20?G/DAY
     Route: 015
     Dates: start: 20230505

REACTIONS (3)
  - Device breakage [None]
  - Product used for unknown indication [None]
  - Complication of device insertion [None]

NARRATIVE: CASE EVENT DATE: 20230505
